FAERS Safety Report 18491321 (Version 2)
Quarter: 2020Q4

REPORT INFORMATION
  Report Type: Report from Study
  Country: BR (occurrence: BR)
  Receive Date: 20201111
  Receipt Date: 20201114
  Transmission Date: 20210114
  Serious: Yes (Other)
  Sender: FDA-Public Use
  Company Number: NVSC2020BR295785

PATIENT
  Age: 80 Year
  Sex: Female
  Weight: 69 kg

DRUGS (3)
  1. ZOMETA [Suspect]
     Active Substance: ZOLEDRONIC ACID
     Indication: BONE DISORDER
     Dosage: UNK (INJECTABLE)
     Route: 065
     Dates: start: 202001
  2. KISQALI [Suspect]
     Active Substance: RIBOCICLIB
     Indication: BREAST CANCER METASTATIC
     Dosage: 3 DF, QD (200 MG)
     Route: 048
     Dates: start: 20200106
  3. FULVESTRANT. [Suspect]
     Active Substance: FULVESTRANT
     Indication: BREAST CANCER METASTATIC
     Dosage: UNK UNK, QMO (INJECTABLE)
     Route: 065
     Dates: start: 202001

REACTIONS (15)
  - Asthenia [Unknown]
  - Rash papular [Not Recovered/Not Resolved]
  - Throat clearing [Recovered/Resolved]
  - Peripheral swelling [Recovering/Resolving]
  - Anxiety [Recovering/Resolving]
  - Sneezing [Recovered/Resolved]
  - Limb discomfort [Not Recovered/Not Resolved]
  - Malaise [Recovered/Resolved]
  - Neoplasm malignant [Recovering/Resolving]
  - Gastrointestinal carcinoma [Unknown]
  - Affect lability [Not Recovered/Not Resolved]
  - Pain [Recovered/Resolved]
  - Cough [Recovered/Resolved]
  - Fatigue [Recovered/Resolved]
  - Tearfulness [Recovered/Resolved]

NARRATIVE: CASE EVENT DATE: 202010
